FAERS Safety Report 13912616 (Version 1)
Quarter: 2017Q3

REPORT INFORMATION
  Report Type: Spontaneous
  Country: US (occurrence: US)
  Receive Date: 20170828
  Receipt Date: 20170828
  Transmission Date: 20171127
  Serious: No
  Sender: FDA-Public Use
  Company Number: US-BAYER-2017-161976

PATIENT
  Age: 56 Year
  Sex: Female
  Weight: 51.97 kg

DRUGS (2)
  1. BENEFIBER [Concomitant]
     Active Substance: STARCH, WHEAT
     Dosage: UNK
  2. MIRALAX [Suspect]
     Active Substance: POLYETHYLENE GLYCOL 3350
     Indication: GASTROINTESTINAL DISORDER
     Dosage: UNK, 4 TO 8OZ OF BEVERAGE
     Route: 048
     Dates: start: 20170821

REACTIONS (1)
  - Drug ineffective [Unknown]

NARRATIVE: CASE EVENT DATE: 20170823
